FAERS Safety Report 23624187 (Version 5)
Quarter: 2024Q1

REPORT INFORMATION
  Report Type: Spontaneous
  Country: AR (occurrence: AR)
  Receive Date: 20240312
  Receipt Date: 20240327
  Transmission Date: 20240410
  Serious: Yes (Death, Hospitalization, Other)
  Sender: FDA-Public Use
  Company Number: AR-BIOMARINAP-AR-2024-156409

PATIENT

DRUGS (2)
  1. NAGLAZYME [Suspect]
     Active Substance: GALSULFASE
     Indication: Mucopolysaccharidosis VI
     Dosage: 1 MILLIGRAM/KILOGRAM, QW
     Route: 042
     Dates: start: 20150618
  2. NAGLAZYME [Suspect]
     Active Substance: GALSULFASE
     Dosage: UNK, QW
     Route: 042
     Dates: start: 20130801

REACTIONS (19)
  - Respiratory distress [Fatal]
  - Infection [Recovering/Resolving]
  - Pulmonary hypertension [Recovering/Resolving]
  - Pyrexia [Recovered/Resolved]
  - Dyspnoea [Recovering/Resolving]
  - Dependence on respirator [Recovering/Resolving]
  - Decubitus ulcer [Recovering/Resolving]
  - Wound secretion [Recovering/Resolving]
  - Wound complication [Recovering/Resolving]
  - Mobility decreased [Recovering/Resolving]
  - Overweight [Recovering/Resolving]
  - Disorientation [Recovering/Resolving]
  - Obstructive sleep apnoea syndrome [Recovering/Resolving]
  - Blood pressure systolic increased [Recovering/Resolving]
  - Nervous system disorder [Unknown]
  - Asthenia [Unknown]
  - Malaise [Recovering/Resolving]
  - Cyanosis [Recovering/Resolving]
  - Headache [Recovering/Resolving]

NARRATIVE: CASE EVENT DATE: 20240201
